FAERS Safety Report 14937231 (Version 2)
Quarter: 2018Q2

REPORT INFORMATION
  Report Type: Spontaneous
  Country: US (occurrence: US)
  Receive Date: 20180525
  Receipt Date: 20180629
  Transmission Date: 20180711
  Serious: No
  Sender: FDA-Public Use
  Company Number: US-ASTRAZENECA-2018SE58467

PATIENT
  Sex: Female
  Weight: 61.2 kg

DRUGS (1)
  1. PULMICORT FLEXHALER [Suspect]
     Active Substance: BUDESONIDE
     Indication: ASTHMA
     Route: 055
     Dates: start: 20180420

REACTIONS (5)
  - Underdose [Unknown]
  - Dyspnoea [Unknown]
  - Exposure during pregnancy [Unknown]
  - Device malfunction [Unknown]
  - Circumstance or information capable of leading to medication error [Unknown]
